FAERS Safety Report 25876178 (Version 1)
Quarter: 2025Q4

REPORT INFORMATION
  Report Type: Report from Study
  Country: US (occurrence: US)
  Receive Date: 20251003
  Receipt Date: 20251003
  Transmission Date: 20260117
  Serious: Yes (Other)
  Sender: ABBVIE
  Company Number: US-ABBVIE-6483611

PATIENT
  Age: 58 Year
  Sex: Male

DRUGS (1)
  1. CREON [Suspect]
     Active Substance: PANCRELIPASE AMYLASE\PANCRELIPASE LIPASE\PANCRELIPASE PROTEASE
     Indication: Product used for unknown indication
     Route: 048
     Dates: start: 20210903, end: 20220331

REACTIONS (4)
  - Cholecystectomy [Recovered/Resolved]
  - Hepatic cyst [Recovered/Resolved]
  - Pancreatic disorder [Recovering/Resolving]
  - Post procedural infection [Unknown]

NARRATIVE: CASE EVENT DATE: 20230101
